FAERS Safety Report 20455308 (Version 3)
Quarter: 2023Q1

REPORT INFORMATION
  Report Type: Spontaneous
  Country: US (occurrence: US)
  Receive Date: 20220210
  Receipt Date: 20230217
  Transmission Date: 20230417
  Serious: No
  Sender: FDA-Public Use
  Company Number: US-PFIZER INC-2021569035

PATIENT
  Age: 85 Year
  Sex: Female

DRUGS (1)
  1. TIKOSYN [Suspect]
     Active Substance: DOFETILIDE
     Dosage: 3 DF, 2X/DAY (125 MCG CAPSULE TAKE 3 CAPSULES BY MOUTH EVERY 12 HOURS)
     Route: 048

REACTIONS (1)
  - Memory impairment [Unknown]
